FAERS Safety Report 9321178 (Version 1)
Quarter: 2013Q2

REPORT INFORMATION
  Report Type: Spontaneous
  Country: AU (occurrence: None)
  Receive Date: 20130528
  Receipt Date: 20130528
  Transmission Date: 20140414
  Serious: Yes (Other)
  Sender: FDA-Public Use
  Company Number: 2013AP005395

PATIENT
  Age: 41 Year
  Sex: Male

DRUGS (6)
  1. QUETIAPINE [Suspect]
     Route: 048
  2. FLUOXETINE (FLUOXETINE) [Suspect]
     Route: 048
  3. OXAZEPAM [Suspect]
     Route: 048
  4. CARBAMAZEPINE [Suspect]
     Route: 048
  5. SODIUM VALPROATE [Suspect]
     Route: 048
  6. EPINEPHRINE [Suspect]
     Indication: VASOPLEGIA SYNDROME
     Route: 042

REACTIONS (8)
  - Vasoplegia syndrome [None]
  - Shock [None]
  - Hypotension [None]
  - Overdose [None]
  - Toxicity to various agents [None]
  - Coma [None]
  - Blood lactic acid increased [None]
  - Metabolic acidosis [None]
